FAERS Safety Report 7963949-9 (Version None)
Quarter: 2011Q4

REPORT INFORMATION
  Report Type: 
  Country: None (occurrence: None)
  Receive Date: 20111208
  Receipt Date: 20111205
  Transmission Date: 20120403
  Serious: Yes (Death, Other)
  Sender: FDA-Public Use
  Company Number: JP-BAYER-200811808BYL

PATIENT
  Age: 72 Year
  Sex: Male
  Weight: 64 kg

DRUGS (9)
  1. DECADRON [Concomitant]
     Dosage: 1-2MG/DAY
     Route: 048
     Dates: start: 20071228, end: 20080423
  2. PROCHLORPERAZINE [Concomitant]
     Route: 048
     Dates: start: 20080328, end: 20080401
  3. OMEPRAZOLE [Concomitant]
     Route: 048
     Dates: start: 20080502
  4. FENTANYL-100 [Concomitant]
     Dosage: 7.5-10MG/DAY
     Route: 062
     Dates: start: 20080404
  5. MEXITIL [Concomitant]
     Route: 048
     Dates: start: 20080303, end: 20080401
  6. OXYCONTIN [Concomitant]
     Dosage: 10-180MG/DAY
     Route: 048
     Dates: start: 20071228, end: 20080403
  7. ZOLPIDEM [Concomitant]
     Route: 048
     Dates: start: 20080303, end: 20080401
  8. NEXAVAR [Suspect]
     Indication: RENAL CELL CARCINOMA
     Dosage: 800 MG (DAILY DOSE), , ORAL
     Route: 048
     Dates: start: 20080314, end: 20080806
  9. ACETAMINOPHEN [Concomitant]
     Route: 048
     Dates: start: 20080526

REACTIONS (8)
  - HYPOPHOSPHATAEMIA [None]
  - GASTROINTESTINAL PERFORATION [None]
  - HYPERTENSION [None]
  - INFECTIOUS PERITONITIS [None]
  - RASH [None]
  - GASTROINTESTINAL HAEMORRHAGE [None]
  - PALMAR-PLANTAR ERYTHRODYSAESTHESIA SYNDROME [None]
  - PNEUMONIA [None]
